FAERS Safety Report 8541554-3 (Version None)
Quarter: 2012Q3

REPORT INFORMATION
  Report Type: 
  Country: None (occurrence: None)
  Receive Date: 20120726
  Receipt Date: 20120510
  Transmission Date: 20120928
  Serious: No
  Sender: FDA-Public Use
  Company Number: US-MUTUAL PHARMACEUTICAL COMPANY, INC.-CLCY20120082

PATIENT
  Sex: Male
  Weight: 73.094 kg

DRUGS (8)
  1. COLCRYS [Suspect]
     Route: 048
     Dates: start: 20120506, end: 20120508
  2. INDOMETHACIN CAP [Concomitant]
     Indication: PAIN
     Route: 048
  3. MAGNESIUM OXIDE 420 MG [Concomitant]
     Indication: MINERAL SUPPLEMENTATION
     Route: 048
  4. COLCRYS [Suspect]
     Indication: GOUT
     Route: 048
     Dates: start: 20120301, end: 20120505
  5. LOSARTAN POTASSIUM [Concomitant]
     Indication: HYPERTENSION
     Route: 048
  6. POTASSIUM CHLORIDE [Concomitant]
     Indication: ELECTROLYTE SUBSTITUTION THERAPY
     Route: 048
  7. INDOMETHACIN CAP [Concomitant]
     Indication: INFLAMMATION
  8. METHOCARBAMOL [Concomitant]
     Indication: MUSCLE RELAXANT THERAPY
     Route: 048

REACTIONS (2)
  - MUSCULOSKELETAL STIFFNESS [None]
  - JOINT STIFFNESS [None]
